FAERS Safety Report 8559147-0 (Version None)
Quarter: 2012Q3

REPORT INFORMATION
  Report Type: 
  Country: None (occurrence: None)
  Receive Date: 20120802
  Receipt Date: 20120719
  Transmission Date: 20120928
  Serious: Yes (Hospitalization)
  Sender: FDA-Public Use
  Company Number: FR-009507513-1207FRA008564

PATIENT

DRUGS (3)
  1. COPEGUS [Suspect]
     Indication: HEPATITIS C
  2. VICTRELIS [Suspect]
  3. PEGASYS [Suspect]
     Indication: HEPATITIS C

REACTIONS (1)
  - MYOCARDIAL INFARCTION [None]
